FAERS Safety Report 9927905 (Version 1)
Quarter: 2014Q1

REPORT INFORMATION
  Report Type: Spontaneous
  Country: US (occurrence: US)
  Receive Date: 20140227
  Receipt Date: 20140227
  Transmission Date: 20141002
  Serious: No
  Sender: FDA-Public Use
  Company Number: US-PFIZER INC-2014055577

PATIENT
  Sex: Male

DRUGS (9)
  1. IBUPROFEN [Suspect]
     Indication: BACK PAIN
     Dosage: 800 MG, 2X/DAY
  2. IBUPROFEN [Suspect]
     Indication: HEADACHE
  3. IBUPROFEN [Suspect]
     Indication: MYALGIA
  4. NAPROXEN SODIUM [Suspect]
     Indication: BACK PAIN
     Dosage: UNK, 2X/DAY
  5. NAPROXEN SODIUM [Suspect]
     Indication: HEADACHE
  6. NAPROXEN SODIUM [Suspect]
     Indication: MYALGIA
  7. PERCOCET [Suspect]
     Indication: BACK PAIN
     Dosage: UNK
  8. VICODIN [Suspect]
     Indication: BACK PAIN
     Dosage: UNK
  9. DILAUDID [Suspect]
     Indication: BACK PAIN
     Dosage: UNK

REACTIONS (1)
  - Drug effect incomplete [Unknown]
